FAERS Safety Report 24327368 (Version 1)
Quarter: 2024Q3

REPORT INFORMATION
  Report Type: Report from Study
  Country: US (occurrence: US)
  Receive Date: 20240917
  Receipt Date: 20240917
  Transmission Date: 20241017
  Serious: Yes (Other)
  Sender: RANBAXY
  Company Number: US-SUN PHARMACEUTICAL INDUSTRIES LTD-2024R1-468252

PATIENT
  Sex: Male

DRUGS (10)
  1. IRON SUCROSE [Suspect]
     Active Substance: IRON SUCROSE
     Indication: Supplementation therapy
     Dosage: UNK
     Route: 065
  2. MAGNESIUM SULFATE [Suspect]
     Active Substance: MAGNESIUM SULFATE\MAGNESIUM SULFATE HEPTAHYDRATE
     Indication: Supplementation therapy
     Dosage: UNK
     Route: 065
  3. HERBALS\TURMERIC [Suspect]
     Active Substance: HERBALS\TURMERIC
     Indication: Supplementation therapy
     Dosage: UNK
     Route: 065
  4. VITAMINS [Suspect]
     Active Substance: VITAMINS
     Indication: Supplementation therapy
     Dosage: UNK
     Route: 065
  5. DIETARY SUPPLEMENT [Suspect]
     Active Substance: DIETARY SUPPLEMENT
     Indication: Supplementation therapy
     Dosage: UNK
     Route: 065
  6. FISH OIL [Suspect]
     Active Substance: FISH OIL
     Indication: Supplementation therapy
     Dosage: UNK
     Route: 065
  7. CALCIUM CITRATE [Suspect]
     Active Substance: CALCIUM CITRATE
     Indication: Supplementation therapy
     Dosage: UNK
     Route: 065
  8. GINKGO [Suspect]
     Active Substance: GINKGO
     Indication: Supplementation therapy
     Dosage: UNK
     Route: 065
  9. GARLIC [Suspect]
     Active Substance: GARLIC
     Indication: Supplementation therapy
     Dosage: UNK
     Route: 065
  10. ZINC [Suspect]
     Active Substance: ZINC
     Indication: Supplementation therapy
     Dosage: UNK
     Route: 065

REACTIONS (1)
  - Drug-induced liver injury [Recovered/Resolved]
